FAERS Safety Report 8077175-9 (Version None)
Quarter: 2012Q1

REPORT INFORMATION
  Report Type: 
  Country: None (occurrence: None)
  Receive Date: 20120127
  Receipt Date: 20120123
  Transmission Date: 20120608
  Serious: Yes (Other)
  Sender: FDA-Public Use
  Company Number: PHEH2012US001964

PATIENT
  Age: 69 Year
  Sex: Female

DRUGS (6)
  1. TEKTURNA [Suspect]
     Dosage: 300 MG, QD
     Dates: start: 20110701, end: 20120120
  2. HYZAAR [Concomitant]
     Dosage: UNK UKN, UNK
  3. FISH OIL [Concomitant]
     Dosage: UNK UKN, UNK
  4. ACIDOPHILUS [Concomitant]
     Dosage: UNK UKN, UNK
  5. TEKTURNA [Suspect]
     Dosage: 150 MG, UNK
  6. MULTI-VITAMINS [Concomitant]
     Dosage: UNK UKN, UNK

REACTIONS (11)
  - JOINT INJURY [None]
  - LIMB INJURY [None]
  - PAIN IN EXTREMITY [None]
  - HAIR TEXTURE ABNORMAL [None]
  - ERYTHEMA [None]
  - THIRST [None]
  - GAIT DISTURBANCE [None]
  - SKIN DISCOLOURATION [None]
  - VASCULAR RUPTURE [None]
  - MICTURITION URGENCY [None]
  - FALL [None]
